FAERS Safety Report 4375584-2 (Version None)
Quarter: 2004Q2

REPORT INFORMATION
  Report Type: 
  Country: None (occurrence: None)
  Receive Date: 20040607
  Receipt Date: 20040602
  Transmission Date: 20050107
  Serious: Yes (Death)
  Sender: FDA-Public Use
  Company Number: KII-1999-0001357

PATIENT
  Sex: Male

DRUGS (1)
  1. MORPHINE SULFATE [Suspect]
     Indication: CANCER PAIN
     Dosage: INTRAVENOUS
     Route: 042

REACTIONS (2)
  - ADENOCARCINOMA [None]
  - DRUG INEFFECTIVE [None]
